FAERS Safety Report 10260312 (Version 1)
Quarter: 2014Q2

REPORT INFORMATION
  Report Type: Spontaneous
  Country: US (occurrence: US)
  Receive Date: 20140625
  Receipt Date: 20140625
  Transmission Date: 20141212
  Serious: No
  Sender: FDA-Public Use
  Company Number: US-SA-2014SA065369

PATIENT
  Age: 38 Year
  Sex: Female
  Weight: 77.1 kg

DRUGS (14)
  1. AUBAGIO [Suspect]
     Indication: MULTIPLE SCLEROSIS
     Route: 065
     Dates: start: 20130318, end: 20130417
  2. PROVIGIL [Concomitant]
  3. FOLIC ACID [Concomitant]
  4. ZANTAC [Concomitant]
  5. LIORESAL [Concomitant]
  6. FLAXSEED OIL [Concomitant]
  7. VITAMIN B12 [Concomitant]
     Dosage: STRENGTH:1000
  8. VITAMIN D3 [Concomitant]
  9. IBUPROFEN [Concomitant]
  10. TRAMADOL HYDROCHLORIDE [Concomitant]
  11. TOPAMAX [Concomitant]
     Dates: start: 20131015
  12. NEURONTIN [Concomitant]
     Dates: start: 20120719
  13. VALIUM [Concomitant]
     Dates: start: 20131118
  14. COPAXONE [Concomitant]
     Dates: start: 20130808

REACTIONS (1)
  - Drug intolerance [Unknown]
